FAERS Safety Report 7411121-3 (Version None)
Quarter: 2011Q2

REPORT INFORMATION
  Report Type: 
  Country: None (occurrence: None)
  Receive Date: 20110413
  Receipt Date: 20100219
  Transmission Date: 20111010
  Serious: Yes (Other)
  Sender: FDA-Public Use
  Company Number: US-BRISTOL-MYERS SQUIBB COMPANY-14974208

PATIENT
  Age: 80 Year
  Sex: Male

DRUGS (4)
  1. BENADRYL [Concomitant]
     Indication: PREMEDICATION
     Dosage: OVER 20 MINS
     Route: 042
  2. ERBITUX [Suspect]
     Indication: HEAD AND NECK CANCER
     Dosage: LOADING DOSE: 760MG
     Route: 042
     Dates: start: 20091229
  3. RANITIDINE [Concomitant]
     Indication: PREMEDICATION
     Dosage: OVER 20 MINS
     Route: 042
  4. HYDROCORTISONE [Concomitant]
     Indication: PREMEDICATION
     Dosage: OVER 20 MINS
     Route: 042

REACTIONS (1)
  - ANAPHYLACTIC REACTION [None]
